FAERS Safety Report 15529805 (Version 1)
Quarter: 2018Q4

REPORT INFORMATION
  Report Type: Spontaneous
  Country: DE (occurrence: DE)
  Receive Date: 20181020
  Receipt Date: 20181020
  Transmission Date: 20190205
  Serious: Yes (Hospitalization)
  Sender: FDA-Public Use
  Company Number: DE-ESPERO PHARMACEUTICALS-ESP201810-000040

PATIENT
  Age: 80 Year
  Sex: Female

DRUGS (1)
  1. NITROLINGUAL PUMPSPRAY [Suspect]
     Active Substance: NITROGLYCERIN
     Route: 060

REACTIONS (1)
  - Hypersensitivity [Unknown]
